FAERS Safety Report 16439509 (Version 4)
Quarter: 2020Q2

REPORT INFORMATION
  Report Type: Spontaneous
  Country: US (occurrence: US)
  Receive Date: 20190617
  Receipt Date: 20200414
  Transmission Date: 20200713
  Serious: No
  Sender: FDA-Public Use
  Company Number: US-PFIZER INC-2019251641

PATIENT
  Age: 69 Year
  Sex: Female

DRUGS (1)
  1. XELJANZ [Suspect]
     Active Substance: TOFACITINIB CITRATE
     Dosage: 5 MG, UNK

REACTIONS (6)
  - Gait disturbance [Unknown]
  - Nasopharyngitis [Unknown]
  - Wrong product administered [Unknown]
  - Somnolence [Unknown]
  - Malaise [Unknown]
  - Eye disorder [Unknown]
